FAERS Safety Report 8514327-5 (Version None)
Quarter: 2012Q3

REPORT INFORMATION
  Report Type: 
  Country: None (occurrence: None)
  Receive Date: 20120717
  Receipt Date: 20120709
  Transmission Date: 20120928
  Serious: Yes (Other)
  Sender: FDA-Public Use
  Company Number: US-JNJFOC-20120704193

PATIENT
  Sex: Female
  Weight: 62.6 kg

DRUGS (9)
  1. RANITIDINE [Concomitant]
     Route: 048
  2. CRESTOR [Concomitant]
     Indication: BLOOD CHOLESTEROL
     Route: 048
     Dates: start: 20110101
  3. PREMARIN [Concomitant]
     Indication: HORMONE LEVEL ABNORMAL
     Route: 065
     Dates: end: 20120501
  4. SIMPONI [Suspect]
     Indication: ARTHRITIS
     Route: 058
     Dates: start: 20120404, end: 20120601
  5. DIOVAN [Concomitant]
     Indication: CARDIAC DISORDER
     Route: 048
     Dates: start: 20111001
  6. NABUMETONE [Concomitant]
     Route: 048
  7. ASPIRIN [Concomitant]
     Indication: CARDIAC DISORDER
     Route: 048
  8. PREDNISONE [Concomitant]
     Indication: ARTHRITIS
     Route: 048
     Dates: start: 19870101
  9. AMOXICILLIN [Concomitant]
     Indication: DENTAL OPERATION
     Route: 048
     Dates: start: 20020101

REACTIONS (6)
  - DEVICE MALFUNCTION [None]
  - DRUG DOSE OMISSION [None]
  - BODY HEIGHT DECREASED [None]
  - WEIGHT INCREASED [None]
  - MEMORY IMPAIRMENT [None]
  - DECUBITUS ULCER [None]
